FAERS Safety Report 7238306-3 (Version None)
Quarter: 2011Q1

REPORT INFORMATION
  Report Type: 
  Country: None (occurrence: None)
  Receive Date: 20110121
  Receipt Date: 20110113
  Transmission Date: 20110831
  Serious: Yes (Other)
  Sender: FDA-Public Use
  Company Number: IT-BAXTER-2011BH001068

PATIENT
  Age: 73 Year
  Sex: Male

DRUGS (6)
  1. DIANEAL [Suspect]
     Indication: PERITONEAL DIALYSIS
     Route: 033
     Dates: start: 20070701, end: 20101214
  2. DIANEAL [Suspect]
     Indication: DIABETIC NEPHROPATHY
     Route: 033
     Dates: start: 20070701, end: 20101214
  3. DIANEAL [Suspect]
     Route: 033
     Dates: start: 20070701, end: 20101214
  4. EXTRANEAL [Suspect]
     Indication: DIABETIC NEPHROPATHY
     Route: 033
     Dates: start: 20070701, end: 20101214
  5. EXTRANEAL [Suspect]
     Indication: PERITONEAL DIALYSIS
     Route: 033
     Dates: start: 20070701, end: 20101214
  6. DIANEAL [Suspect]
     Route: 033
     Dates: start: 20070701, end: 20101214

REACTIONS (2)
  - ABDOMINAL MASS [None]
  - PERITONITIS [None]
